FAERS Safety Report 13207319 (Version 1)
Quarter: 2017Q1

REPORT INFORMATION
  Report Type: Spontaneous
  Country: US (occurrence: US)
  Receive Date: 20170208
  Receipt Date: 20170208
  Transmission Date: 20170428
  Serious: Yes (Hospitalization)
  Sender: FDA-Public Use
  Company Number: None

PATIENT
  Age: 43 Year
  Sex: Female
  Weight: 72 kg

DRUGS (4)
  1. VORINOSTAT - 400MG [Suspect]
     Active Substance: VORINOSTAT
     Indication: B-CELL SMALL LYMPHOCYTIC LYMPHOMA
     Dosage: 5600 MG DAYS 1-14 PO
     Route: 048
     Dates: start: 20141031, end: 20141114
  2. WARFARIN [Concomitant]
     Active Substance: WARFARIN
  3. RITUXIMAB - 500MG/M2 [Suspect]
     Active Substance: RITUXIMAB
     Indication: B-CELL SMALL LYMPHOCYTIC LYMPHOMA
     Dosage: 900 MG DAY 1 IV
     Route: 042
     Dates: start: 20141031
  4. PLAQUENIL [Concomitant]
     Active Substance: HYDROXYCHLOROQUINE SULFATE

REACTIONS (4)
  - Heart rate increased [None]
  - Oral candidiasis [None]
  - Neutropenia [None]
  - Febrile neutropenia [None]

NARRATIVE: CASE EVENT DATE: 20150201
